FAERS Safety Report 5280066-X (Version None)
Quarter: 2007Q1

REPORT INFORMATION
  Report Type: 
  Country: None (occurrence: None)
  Receive Date: 20070322
  Receipt Date: 20070308
  Transmission Date: 20070707
  Serious: Yes (Disabling)
  Sender: FDA-Public Use
  Company Number: 6030563

PATIENT
  Age: 63 Year
  Sex: Female

DRUGS (8)
  1. EUTIROX(100 MICROGRAM, TABLET) (LEVOTHYROXINE SODIUM) [Suspect]
     Indication: HYPOTHYROIDISM
     Dosage: SEE IMAGE
     Route: 048
     Dates: start: 20061013, end: 20070101
  2. EUTIROX(100 MICROGRAM, TABLET) (LEVOTHYROXINE SODIUM) [Suspect]
     Indication: HYPOTHYROIDISM
     Dosage: SEE IMAGE
     Route: 048
     Dates: start: 20070101
  3. EUTIROX(100 MICROGRAM, TABLET) (LEVOTHYROXINE SODIUM) [Suspect]
     Indication: HYPOTHYROIDISM
     Dosage: SEE IMAGE
     Route: 048
     Dates: start: 20070301
  4. FLUOXETINE [Suspect]
     Indication: DEPRESSION
     Dosage: 1 DOSAGE FORMS (1 DOSAGE FORMS, 1 IN 1 D) ORAL
     Route: 048
     Dates: start: 20061013, end: 20070101
  5. PERPHENAZINE [Suspect]
     Indication: DEPRESSION
     Dosage: SEE IMAGE
     Route: 048
     Dates: start: 20070101, end: 20070101
  6. PERPHENAZINE [Suspect]
     Indication: DEPRESSION
     Dosage: SEE IMAGE
     Route: 048
     Dates: start: 20070101, end: 20070211
  7. CLONAZEPAM [Suspect]
     Indication: ANXIETY
     Dosage: SEE IMAGE
     Dates: start: 20061013, end: 20070101
  8. CLONAZEPAM [Suspect]
     Indication: ANXIETY
     Dosage: SEE IMAGE
     Dates: start: 20070101, end: 20070111

REACTIONS (12)
  - DIPLOPIA [None]
  - DIZZINESS [None]
  - DRY EYE [None]
  - DRY MOUTH [None]
  - DRY SKIN [None]
  - EYELID DISORDER [None]
  - NYSTAGMUS [None]
  - PHOTOPHOBIA [None]
  - VERTIGO [None]
  - VISION BLURRED [None]
  - VISUAL ACUITY REDUCED [None]
  - VISUAL DISTURBANCE [None]
